FAERS Safety Report 5586533-3 (Version None)
Quarter: 2008Q1

REPORT INFORMATION
  Report Type: 
  Country: None (occurrence: None)
  Receive Date: 20080107
  Receipt Date: 20071227
  Transmission Date: 20080703
  Serious: Yes (Hospitalization)
  Sender: FDA-Public Use
  Company Number: 2007BI014892

PATIENT
  Age: 77 Year
  Sex: Female
  Weight: 62.1428 kg

DRUGS (13)
  1. AVONEX [Suspect]
     Indication: MULTIPLE SCLEROSIS
     Dosage: 30 UG; QW; IM, 30 UG; QW; IM
     Route: 030
     Dates: start: 20010120, end: 20030501
  2. AVONEX [Suspect]
     Indication: MULTIPLE SCLEROSIS
     Dosage: 30 UG; QW; IM, 30 UG; QW; IM
     Route: 030
     Dates: start: 20061001
  3. BETASERAN [Concomitant]
  4. NORVASC [Concomitant]
  5. OXAZEPAM [Concomitant]
  6. MULTI-VITAMIN [Concomitant]
  7. CALCIUM VITAMIN D [Concomitant]
  8. VITAMN C [Concomitant]
  9. ASPIRIN [Concomitant]
  10. AMILORIDE HYDROCHLORIDE [Concomitant]
  11. NOTOSYN [Concomitant]
  12. LORAZEPAM [Concomitant]
  13. ARGENTIN [Concomitant]

REACTIONS (4)
  - NEPHRECTOMY [None]
  - RENAL CELL CARCINOMA STAGE III [None]
  - SPLENECTOMY [None]
  - SPLENIC CYST [None]
